FAERS Safety Report 11055219 (Version 3)
Quarter: 2015Q3

REPORT INFORMATION
  Report Type: Spontaneous
  Country: US (occurrence: US)
  Receive Date: 20150422
  Receipt Date: 20150704
  Transmission Date: 20151125
  Serious: Yes (Hospitalization)
  Sender: FDA-Public Use
  Company Number: US-SA-2015SA037141

PATIENT
  Age: 64 Year
  Sex: Female

DRUGS (25)
  1. LOVENOX [Suspect]
     Active Substance: ENOXAPARIN SODIUM
     Route: 065
     Dates: start: 20150219
  2. COUMADIN [Concomitant]
     Active Substance: WARFARIN SODIUM
  3. ZOCOR [Concomitant]
     Active Substance: SIMVASTATIN
     Route: 048
  4. DDAVP [Concomitant]
     Active Substance: DESMOPRESSIN ACETATE
     Route: 048
  5. FOLTX [Concomitant]
     Active Substance: CYANOCOBALAMIN CO-57\FOLIC ACID\PYRIDOXINE HYDROCHLORIDE
     Dosage: DOSE: 1 (UNITS NOT REPORTED)
     Route: 048
  6. NORCO [Concomitant]
     Active Substance: ACETAMINOPHEN\HYDROCODONE BITARTRATE
     Indication: PAIN
     Dosage: 1-2 TABS EVERY 4-6-HRS PRN FOR PAIN (1 DOSAGE FORMS,1 IN 4 HR)
     Route: 048
  7. SUNITINIB [Concomitant]
     Active Substance: SUNITINIB
     Route: 048
  8. NEURONTIN [Concomitant]
     Active Substance: GABAPENTIN
     Route: 048
  9. LYRICA [Concomitant]
     Active Substance: PREGABALIN
     Route: 048
  10. VITAMIN D3 [Concomitant]
     Active Substance: CHOLECALCIFEROL
     Dosage: DOSE:2000 UNIT(S)
     Route: 048
  11. POTASSIUM [Concomitant]
     Active Substance: POTASSIUM
  12. NORVASC [Concomitant]
     Active Substance: AMLODIPINE BESYLATE
     Route: 048
  13. CYTOMEL [Concomitant]
     Active Substance: LIOTHYRONINE SODIUM
     Route: 048
  14. SENSIPAR [Concomitant]
     Active Substance: CINACALCET HYDROCHLORIDE
     Dosage: DOSEE: 1 (UNITS NOT REPORTED)
     Route: 048
  15. TUMS [Concomitant]
     Active Substance: CALCIUM CARBONATE
     Route: 048
  16. SYNTHROID [Concomitant]
     Active Substance: LEVOTHYROXINE SODIUM
  17. CALCIUM [Concomitant]
     Active Substance: CALCIUM
  18. RENAL CAPS [Concomitant]
  19. OMEPRAZOLE/SODIUM BICARBONATE [Concomitant]
     Route: 048
  20. JANUVIA [Concomitant]
     Active Substance: SITAGLIPTIN PHOSPHATE
     Route: 048
  21. DELTASONE [Concomitant]
     Active Substance: PREDNISONE
     Route: 048
  22. SOMATULINE DEPOT [Suspect]
     Active Substance: LANREOTIDE ACETATE
     Indication: NEUROENDOCRINE TUMOUR
     Dosage: STRENGTH: 120 MG.
     Route: 058
     Dates: start: 201502
  23. CORTISONE [Concomitant]
     Active Substance: CORTISONE\HYDROCORTISONE
  24. MAGNESIUM [Concomitant]
     Active Substance: MAGNESIUM
     Dosage: DOSE: 1 (UNITS NOT REPORTED)
     Route: 048
  25. SOMATULINE DEPOT [Suspect]
     Active Substance: LANREOTIDE ACETATE
     Indication: NEUROENDOCRINE TUMOUR
     Dosage: STRENGTH: 120 MG.
     Route: 058
     Dates: start: 201502

REACTIONS (14)
  - Presyncope [Recovered/Resolved]
  - Chills [Recovered/Resolved]
  - Hypoaesthesia [Recovered/Resolved]
  - Nausea [Recovered/Resolved]
  - Headache [Recovered/Resolved]
  - Hypotension [Recovered/Resolved]
  - Coagulopathy [Unknown]
  - Epistaxis [Recovered/Resolved]
  - Blood glucose decreased [Not Recovered/Not Resolved]
  - Nasal congestion [Recovered/Resolved]
  - Haemoptysis [Recovered/Resolved]
  - Eye haemorrhage [Unknown]
  - Iron deficiency anaemia [Unknown]
  - Cough [Recovered/Resolved]

NARRATIVE: CASE EVENT DATE: 2015
